FAERS Safety Report 23879246 (Version 1)
Quarter: 2024Q2

REPORT INFORMATION
  Report Type: Report from Study
  Country: US (occurrence: US)
  Receive Date: 20240521
  Receipt Date: 20240521
  Transmission Date: 20240716
  Serious: Yes (Hospitalization, Other)
  Sender: FDA-Public Use
  Company Number: US-JNJFOC-20230951729

PATIENT
  Sex: Female

DRUGS (3)
  1. DARZALEX [Suspect]
     Active Substance: DARATUMUMAB
     Indication: Plasma cell myeloma
     Route: 065
  2. TECVAYLI [Suspect]
     Active Substance: TECLISTAMAB-CQYV
     Indication: Plasma cell myeloma
     Route: 058
     Dates: start: 202305
  3. DEXAMETHASONE [Suspect]
     Active Substance: DEXAMETHASONE
     Indication: Plasma cell myeloma
     Route: 065

REACTIONS (14)
  - Plasma cell myeloma [Unknown]
  - Tracheostomy tube removal [Unknown]
  - Drug ineffective [Unknown]
  - Memory impairment [Unknown]
  - Vision blurred [Unknown]
  - Increased appetite [Unknown]
  - White blood cell count decreased [Unknown]
  - Cough [Unknown]
  - Fatigue [Unknown]
  - Intentional product use issue [Unknown]
  - Arthralgia [Recovering/Resolving]
  - Insomnia [Unknown]
  - Injection site pain [Unknown]
  - Injection site erythema [Unknown]

NARRATIVE: CASE EVENT DATE: 20230501
